FAERS Safety Report 9988137 (Version 2)
Quarter: 2014Q2

REPORT INFORMATION
  Report Type: Spontaneous
  Country: US (occurrence: US)
  Receive Date: 20140308
  Receipt Date: 20140417
  Transmission Date: 20141212
  Serious: No
  Sender: FDA-Public Use
  Company Number: US-009507513-1403USA000214

PATIENT
  Age: 73 Year
  Sex: Male
  Weight: 79.37 kg

DRUGS (1)
  1. DULERA [Suspect]
     Dosage: 200/5 MICROGRAM, 2 PUFFS TWICE DAILY
     Route: 055
     Dates: start: 201402

REACTIONS (3)
  - Drug dose omission [Unknown]
  - Product quality issue [Unknown]
  - No adverse event [Unknown]
